FAERS Safety Report 15641116 (Version 2)
Quarter: 2018Q4

REPORT INFORMATION
  Report Type: Spontaneous
  Country: DK (occurrence: DK)
  Receive Date: 20181120
  Receipt Date: 20181211
  Transmission Date: 20190205
  Serious: Yes (Other)
  Sender: FDA-Public Use
  Company Number: DK-ALLERGAN-1854072US

PATIENT
  Age: 25 Year
  Sex: Male

DRUGS (4)
  1. TRAMADOL. [Suspect]
     Active Substance: TRAMADOL
     Indication: BACK PAIN
     Dosage: 150-400 MG QD
     Route: 065
  2. CHLORZOXAZONE. [Suspect]
     Active Substance: CHLORZOXAZONE
     Indication: BACK PAIN
     Dosage: 250 MG X 3 DAILY
     Route: 065
  3. FENTANYL. [Suspect]
     Active Substance: FENTANYL
     Indication: PRODUCT USED FOR UNKNOWN INDICATION
     Dosage: 25 MICROGRAMS/HOUR
     Route: 065
  4. MORPHINE SULFATE UNK [Suspect]
     Active Substance: MORPHINE SULFATE
     Indication: BACK PAIN
     Dosage: 20-40 MG WITH THE POSSIBILITY OF A FURTHER 10 MG X 4, AS REQUIRED
     Route: 065

REACTIONS (9)
  - Secondary adrenocortical insufficiency [Recovered/Resolved]
  - Gait disturbance [Unknown]
  - Weight decreased [Recovered/Resolved]
  - Musculoskeletal discomfort [Unknown]
  - Sensory disturbance [Unknown]
  - Muscle spasms [Unknown]
  - Dizziness [Unknown]
  - Nausea [Unknown]
  - Drug ineffective [Unknown]
